FAERS Safety Report 5632287-1 (Version None)
Quarter: 2008Q1

REPORT INFORMATION
  Report Type: 
  Country: None (occurrence: None)
  Receive Date: 20080212
  Receipt Date: 20080129
  Transmission Date: 20080703
  Serious: Yes (Disabling)
  Sender: FDA-Public Use
  Company Number: 2008S1001617

PATIENT
  Age: 62 Year
  Sex: Male

DRUGS (10)
  1. ATENOLOL [Suspect]
     Indication: DRUG USE FOR UNKNOWN INDICATION
     Dosage: 75 MG
  2. INSULIN GLARGINE (INSULIN GLARGINE) [Suspect]
     Indication: DRUG USE FOR UNKNOWN INDICATION
     Dosage: SUBCUTANEOUS
     Route: 058
  3. AMLODIPINE [Concomitant]
  4. ASPIRIN [Concomitant]
  5. ATORVASTATIN CALCIUM [Concomitant]
  6. CLOPIDOGREL [Concomitant]
  7. HUMALOG [Concomitant]
  8. IVABRADINE [Concomitant]
  9. NICORANDIL [Concomitant]
  10. TRANDOLAPRIL [Concomitant]

REACTIONS (5)
  - ERYTHEMA [None]
  - IMPAIRED HEALING [None]
  - ITCHING SCAR [None]
  - PRURITUS [None]
  - URTICARIA [None]
